FAERS Safety Report 19300728 (Version 1)
Quarter: 2021Q2

REPORT INFORMATION
  Report Type: Spontaneous
  Country: US (occurrence: US)
  Receive Date: 20210525
  Receipt Date: 20210525
  Transmission Date: 20210717
  Serious: Yes (Life-Threatening, Disabling, Other)
  Sender: FDA-Public Use
  Company Number: None

PATIENT
  Age: 31 Year
  Sex: Female
  Weight: 66.6 kg

DRUGS (2)
  1. LUPRON INJECTIONS [Concomitant]
     Dates: start: 20210409, end: 20210409
  2. LUPRON [Suspect]
     Active Substance: LEUPROLIDE ACETATE

REACTIONS (20)
  - Loss of consciousness [None]
  - Amnesia [None]
  - Myalgia [None]
  - Weight increased [None]
  - Mood swings [None]
  - Migraine [None]
  - Fatigue [None]
  - Bone pain [None]
  - Libido decreased [None]
  - Hypersomnia [None]
  - Anger [None]
  - Anxiety [None]
  - Suicidal ideation [None]
  - Vision blurred [None]
  - Hot flush [None]
  - Depression [None]
  - Pain [None]
  - Muscle spasms [None]
  - Apathy [None]
  - Menopausal symptoms [None]

NARRATIVE: CASE EVENT DATE: 202104
